FAERS Safety Report 17570281 (Version 4)
Quarter: 2020Q3

REPORT INFORMATION
  Report Type: Report from Study
  Country: None (occurrence: US)
  Receive Date: 20200323
  Receipt Date: 20200923
  Transmission Date: 20201102
  Serious: Yes (Other)
  Sender: FDA-Public Use
  Company Number: US-ABBVIE-20K-163-3282290-00

PATIENT
  Age: 81 Year
  Sex: Female

DRUGS (1)
  1. HUMIRA [Suspect]
     Active Substance: ADALIMUMAB
     Indication: RHEUMATOID ARTHRITIS
     Route: 058

REACTIONS (9)
  - Deafness transitory [Not Recovered/Not Resolved]
  - Tinnitus [Not Recovered/Not Resolved]
  - Ear infection [Not Recovered/Not Resolved]
  - Arthralgia [Not Recovered/Not Resolved]
  - Osteoporosis [Unknown]
  - Vertigo [Recovered/Resolved]
  - Vomiting [Not Recovered/Not Resolved]
  - Vertigo [Not Recovered/Not Resolved]
  - Deafness [Not Recovered/Not Resolved]

NARRATIVE: CASE EVENT DATE: 202004
